FAERS Safety Report 16209743 (Version 2)
Quarter: 2019Q2

REPORT INFORMATION
  Report Type: Report from Study
  Country: US (occurrence: US)
  Receive Date: 20190417
  Receipt Date: 20190422
  Transmission Date: 20190711
  Serious: Yes (Life-Threatening)
  Sender: FDA-Public Use
  Company Number: US-HLSUS-2019-US-000274

PATIENT
  Age: 35 Year
  Sex: Female
  Weight: 62.6 kg

DRUGS (1)
  1. CLOZARIL [Suspect]
     Active Substance: CLOZAPINE
     Indication: SCHIZOPHRENIA
     Dosage: 375 MG
     Route: 048
     Dates: start: 201902, end: 20190321

REACTIONS (3)
  - Neutropenia [Unknown]
  - Neutrophil count increased [Recovered/Resolved]
  - Leukopenia [Unknown]

NARRATIVE: CASE EVENT DATE: 20190304
